FAERS Safety Report 7061853-4 (Version None)
Quarter: 2010Q4

REPORT INFORMATION
  Report Type: 
  Country: None (occurrence: None)
  Receive Date: 20101026
  Receipt Date: 20101014
  Transmission Date: 20110411
  Serious: Yes (Death)
  Sender: FDA-Public Use
  Company Number: SE-ACTELION-A-CH2010-35632

PATIENT
  Age: 77 Year
  Sex: Male

DRUGS (2)
  1. TRACLEER [Suspect]
     Indication: PULMONARY HYPERTENSION
     Dosage: UNK , UNK
     Route: 048
     Dates: start: 20041001, end: 20100401
  2. OXYGEN [Concomitant]

REACTIONS (5)
  - CARDIAC ARREST [None]
  - DISEASE PROGRESSION [None]
  - PULMONARY FIBROSIS [None]
  - RESPIRATORY FAILURE [None]
  - RESUSCITATION [None]
